FAERS Safety Report 7671110-0 (Version None)
Quarter: 2011Q3

REPORT INFORMATION
  Report Type: 
  Country: None (occurrence: None)
  Receive Date: 20110809
  Receipt Date: 20110730
  Transmission Date: 20111222
  Serious: Yes (Hospitalization)
  Sender: FDA-Public Use
  Company Number: US-JNJFOC-20110801676

PATIENT
  Age: 3 Year
  Sex: Female
  Weight: 15.88 kg

DRUGS (7)
  1. JUNIOR STRENGTH MOTRIN [Suspect]
     Indication: DYSURIA
     Route: 048
     Dates: start: 20110724, end: 20110724
  2. IBUPROFEN [Suspect]
     Indication: PRODUCT USED FOR UNKNOWN INDICATION
     Route: 065
  3. JUNIOR STRENGTH MOTRIN [Suspect]
     Indication: MALAISE
     Route: 048
     Dates: start: 20110724, end: 20110724
  4. JUNIOR STRENGTH MOTRIN [Suspect]
     Indication: FEELING HOT
     Dosage: 1AND A HALF, ONE TIME BEFORE BED
     Route: 048
     Dates: start: 20110209, end: 20110209
  5. JUNIOR STRENGTH MOTRIN [Suspect]
     Dosage: 1AND A HALF, ONE TIME BEFORE BED
     Route: 048
     Dates: start: 20110209, end: 20110209
  6. JUNIOR STRENGTH MOTRIN [Suspect]
     Route: 048
     Dates: start: 20110724, end: 20110724
  7. JUNIOR STRENGTH MOTRIN [Suspect]
     Dosage: 1AND A HALF, ONE TIME BEFORE BED
     Route: 048
     Dates: start: 20110209, end: 20110209

REACTIONS (5)
  - VOMITING [None]
  - PRODUCT QUALITY ISSUE [None]
  - PYREXIA [None]
  - DIARRHOEA [None]
  - DIARRHOEA HAEMORRHAGIC [None]
